FAERS Safety Report 7997404-7 (Version None)
Quarter: 2011Q4

REPORT INFORMATION
  Report Type: 
  Country: None (occurrence: None)
  Receive Date: 20111221
  Receipt Date: 20111213
  Transmission Date: 20120403
  Serious: Yes (Disabling, Other)
  Sender: FDA-Public Use
  Company Number: US-JNJFOC-20110904604

PATIENT
  Sex: Male

DRUGS (48)
  1. DOXORUBICIN HCL [Suspect]
     Dosage: CYCLE 3
     Route: 042
     Dates: start: 20070906, end: 20070906
  2. DOXORUBICIN HCL [Suspect]
     Dosage: CYCLE 5
     Route: 042
     Dates: start: 20071101, end: 20071101
  3. DOXORUBICIN HCL [Suspect]
     Dosage: CYCLE 8
     Route: 042
     Dates: start: 20080201, end: 20080201
  4. DOXORUBICIN HCL [Suspect]
     Dosage: CYCLE 15
     Route: 042
     Dates: start: 20080814, end: 20080814
  5. DOXORUBICIN HCL [Suspect]
     Dosage: CYCLE 41
     Route: 042
     Dates: start: 20101202, end: 20101202
  6. DOXORUBICIN HCL [Suspect]
     Dosage: CYCLE 42
     Route: 042
     Dates: start: 20110120, end: 20110120
  7. DOXORUBICIN HCL [Suspect]
     Dosage: CYCLE 44
     Route: 042
     Dates: start: 20110505, end: 20110505
  8. DOXORUBICIN HCL [Suspect]
     Dosage: CYCLE 11
     Route: 042
     Dates: start: 20080424, end: 20080424
  9. DOXORUBICIN HCL [Suspect]
     Dosage: CYCLE 24
     Route: 042
     Dates: start: 20090423, end: 20090423
  10. DOXORUBICIN HCL [Suspect]
     Dosage: CYCLE 35
     Route: 042
     Dates: start: 20100404, end: 20100404
  11. DOXORUBICIN HCL [Suspect]
     Dosage: CYCLE 40
     Route: 042
     Dates: start: 20101021, end: 20101021
  12. DOXORUBICIN HCL [Suspect]
     Route: 042
  13. DOXORUBICIN HCL [Suspect]
     Dosage: CYCLE 4
     Route: 042
     Dates: start: 20071004, end: 20071004
  14. DOXORUBICIN HCL [Suspect]
     Dosage: CYCLE 6
     Route: 042
     Dates: start: 20071129, end: 20071129
  15. DOXORUBICIN HCL [Suspect]
     Dosage: CYCLE 7
     Route: 042
     Dates: start: 20080103, end: 20080103
  16. DOXORUBICIN HCL [Suspect]
     Dosage: CYCLE 12
     Route: 042
     Dates: start: 20080522, end: 20080522
  17. DOXORUBICIN HCL [Suspect]
     Dosage: CYCLE 16
     Route: 042
     Dates: start: 20080911, end: 20080911
  18. DOXORUBICIN HCL [Suspect]
     Dosage: CYCLE 28
     Route: 042
     Dates: start: 20090820, end: 20090820
  19. DOXORUBICIN HCL [Suspect]
     Dosage: CYCLE 31
     Route: 042
     Dates: start: 20091203, end: 20091203
  20. DOXORUBICIN HCL [Suspect]
     Dosage: EVERY 5 TO 6 WEEKS
     Route: 042
  21. DOXORUBICIN HCL [Suspect]
     Dosage: CYCLE 1.
     Route: 042
     Dates: start: 20070705, end: 20070705
  22. DOXORUBICIN HCL [Suspect]
     Dosage: CYCLE 14
     Route: 042
     Dates: start: 20080717, end: 20080717
  23. DOXORUBICIN HCL [Suspect]
     Dosage: CYCLE 17
     Route: 042
     Dates: start: 20081009, end: 20081009
  24. DOXORUBICIN HCL [Suspect]
     Dosage: CYCLE 18
     Route: 042
     Dates: start: 20081111, end: 20081111
  25. DOXORUBICIN HCL [Suspect]
     Dosage: CYCLE 36
     Route: 042
     Dates: start: 20100506, end: 20100506
  26. DOXORUBICIN HCL [Suspect]
     Dosage: CYCLE 38
     Route: 042
     Dates: start: 20100722, end: 20100722
  27. DOXORUBICIN HCL [Suspect]
     Dosage: CYCLE 2
     Route: 042
     Dates: start: 20070810, end: 20070810
  28. DOXORUBICIN HCL [Suspect]
     Dosage: CYCLE 13
     Route: 042
     Dates: start: 20080619, end: 20080619
  29. DOXORUBICIN HCL [Suspect]
     Dosage: CYCLE 19
     Route: 042
     Dates: start: 20081204, end: 20081204
  30. DOXORUBICIN HCL [Suspect]
     Dosage: CYCLE 20
     Route: 042
     Dates: start: 20090102, end: 20090102
  31. DOXORUBICIN HCL [Suspect]
     Dosage: CYCLE 21
     Route: 042
     Dates: start: 20090129, end: 20090129
  32. DOXORUBICIN HCL [Suspect]
     Dosage: CYCLE 26
     Route: 042
     Dates: start: 20090618, end: 20090618
  33. DOXORUBICIN HCL [Suspect]
     Dosage: CYCLE 30
     Route: 042
     Dates: start: 20091029, end: 20091029
  34. DOXORUBICIN HCL [Suspect]
     Dosage: CYCLE 34
     Route: 042
     Dates: start: 20100304, end: 20100304
  35. DOXORUBICIN HCL [Suspect]
     Dosage: CYCLE 22
     Route: 042
     Dates: start: 20090226, end: 20090226
  36. DOXORUBICIN HCL [Suspect]
     Dosage: CYCLE 37
     Route: 042
     Dates: start: 20100617, end: 20100617
  37. DOXORUBICIN HCL [Suspect]
     Dosage: CYCLE 39
     Route: 042
     Dates: start: 20100826, end: 20100826
  38. DOXORUBICIN HCL [Suspect]
     Dosage: CYCLE 46
     Route: 042
     Dates: start: 20110908, end: 20110908
  39. DOXORUBICIN HCL [Suspect]
     Indication: LEIOMYOSARCOMA
     Dosage: CYCLE 45
     Route: 042
     Dates: start: 20110714, end: 20110714
  40. DOXORUBICIN HCL [Suspect]
     Dosage: CYCLE 25
     Route: 042
     Dates: start: 20090521, end: 20090521
  41. DOXORUBICIN HCL [Suspect]
     Dosage: CYCLE 27
     Route: 042
     Dates: start: 20090716, end: 20090716
  42. DOXORUBICIN HCL [Suspect]
     Dosage: CYCLE 9
     Route: 042
     Dates: start: 20080228, end: 20080228
  43. DOXORUBICIN HCL [Suspect]
     Dosage: CYCLE 10
     Route: 042
     Dates: start: 20080327, end: 20080327
  44. DOXORUBICIN HCL [Suspect]
     Dosage: CYCLE 23
     Route: 042
     Dates: start: 20090326, end: 20090326
  45. DOXORUBICIN HCL [Suspect]
     Dosage: CYCLE 29
     Route: 042
     Dates: start: 20091001, end: 20091001
  46. DOXORUBICIN HCL [Suspect]
     Dosage: CYCLE 32
     Route: 042
     Dates: start: 20100107, end: 20100107
  47. DOXORUBICIN HCL [Suspect]
     Dosage: CYCLE 33
     Route: 042
     Dates: start: 20100204, end: 20100204
  48. DOXORUBICIN HCL [Suspect]
     Dosage: CYCLE 43
     Route: 042
     Dates: start: 20110317, end: 20110317

REACTIONS (3)
  - TOXICITY TO VARIOUS AGENTS [None]
  - PAIN [None]
  - OFF LABEL USE [None]
